FAERS Safety Report 9655598 (Version 2)
Quarter: 2014Q1

REPORT INFORMATION
  Report Type: Report from Study
  Country: GB (occurrence: GB)
  Receive Date: 20131030
  Receipt Date: 20140219
  Transmission Date: 20141002
  Serious: Yes (Other)
  Sender: FDA-Public Use
  Company Number: GB-ROCHE-1295518

PATIENT
  Age: 82 Year
  Sex: Female

DRUGS (6)
  1. RANIBIZUMAB [Suspect]
     Indication: PRODUCT USED FOR UNKNOWN INDICATION
     Route: 050
     Dates: start: 20120106
  2. RANIBIZUMAB [Suspect]
     Route: 050
     Dates: start: 20120302
  3. RANIBIZUMAB [Suspect]
     Route: 050
     Dates: start: 20120602
  4. RANIBIZUMAB [Suspect]
     Route: 050
     Dates: start: 20121011
  5. MONOMAX [Concomitant]
     Indication: MYOCARDIAL ISCHAEMIA
     Route: 065
  6. CLOPIDOGREL [Concomitant]

REACTIONS (1)
  - Cerebrovascular accident [Recovered/Resolved with Sequelae]
